FAERS Safety Report 12172191 (Version 1)
Quarter: 2016Q1

REPORT INFORMATION
  Report Type: Spontaneous
  Country: US (occurrence: None)
  Receive Date: 20160310
  Receipt Date: 20160310
  Transmission Date: 20160526
  Serious: Yes (Other)
  Sender: FDA-Public Use
  Company Number: None

PATIENT
  Age: 67 Year
  Sex: Female
  Weight: 62.14 kg

DRUGS (1)
  1. CAPECITABINE. [Suspect]
     Active Substance: CAPECITABINE
     Indication: NEOPLASM OF APPENDIX
     Dates: start: 20150127

REACTIONS (3)
  - Dehydration [None]
  - Skin exfoliation [None]
  - Skin ulcer [None]

NARRATIVE: CASE EVENT DATE: 20151220
